FAERS Safety Report 7593984-4 (Version None)
Quarter: 2011Q3

REPORT INFORMATION
  Report Type: 
  Country: None (occurrence: None)
  Receive Date: 20110706
  Receipt Date: 20110627
  Transmission Date: 20111222
  Serious: Yes (Other)
  Sender: FDA-Public Use
  Company Number: US-ASTRAZENECA-2011SE21255

PATIENT
  Age: 51 Year
  Sex: Female

DRUGS (3)
  1. SYMBICORT [Suspect]
     Route: 055
  2. PULMICORT FLEXHALER [Suspect]
     Route: 055
  3. NEXIUM [Suspect]
     Route: 048

REACTIONS (7)
  - DRUG INEFFECTIVE [None]
  - NEOPLASM MALIGNANT [None]
  - MALAISE [None]
  - EAR INFECTION [None]
  - GRANULOMA ANNULARE [None]
  - RESPIRATORY TRACT INFECTION [None]
  - SINUSITIS [None]
